FAERS Safety Report 9458848 (Version 1)
Quarter: 2013Q3

REPORT INFORMATION
  Report Type: Spontaneous
  Country: US (occurrence: US)
  Receive Date: 20130814
  Receipt Date: 20130814
  Transmission Date: 20140515
  Serious: Yes (Other)
  Sender: FDA-Public Use
  Company Number: US-SANOFI-AVENTIS-2013SA080926

PATIENT
  Age: 63 Year
  Sex: Male

DRUGS (3)
  1. LANTUS SOLOSTAR [Suspect]
     Indication: DIABETES MELLITUS
     Dosage: DOSE:34 UNIT(S)
     Route: 058
  2. NOVOLOG [Suspect]
     Route: 065
  3. SOLOSTAR [Concomitant]
     Indication: DIABETES MELLITUS

REACTIONS (2)
  - Ligament injury [Unknown]
  - Fall [Unknown]
